FAERS Safety Report 5375532-2 (Version None)
Quarter: 2007Q2

REPORT INFORMATION
  Report Type: 
  Country: None (occurrence: None)
  Receive Date: 20070627
  Receipt Date: 20070622
  Transmission Date: 20071010
  Serious: Yes (Other)
  Sender: FDA-Public Use
  Company Number: 2007SP010172

PATIENT
  Age: 69 Year
  Sex: Male
  Weight: 73 kg

DRUGS (8)
  1. NASONEX [Suspect]
     Indication: SEASONAL ALLERGY
     Dosage: 2 DF; BID; NAS
     Route: 045
     Dates: start: 20070425, end: 20070515
  2. DESLORATADINE [Suspect]
     Indication: SEASONAL ALLERGY
     Dosage: 5 MG; QAM; PO
     Route: 048
     Dates: start: 20070425, end: 20070510
  3. CETIRIZINE HCL [Concomitant]
  4. KARDEGIC [Concomitant]
  5. SECTRAL [Concomitant]
  6. ELISOR [Concomitant]
  7. EZETROL [Concomitant]
  8. AMLODIPINE [Concomitant]

REACTIONS (2)
  - TOXIC SKIN ERUPTION [None]
  - VIRAL INFECTION [None]
